FAERS Safety Report 13337988 (Version 2)
Quarter: 2017Q1

REPORT INFORMATION
  Report Type: Report from Study
  Country: CA (occurrence: CA)
  Receive Date: 20170315
  Receipt Date: 20170328
  Transmission Date: 20170428
  Serious: Yes (Death)
  Sender: FDA-Public Use
  Company Number: CA-TOLMAR, INC.-2017CA002954

PATIENT

DRUGS (1)
  1. ELIGARD [Suspect]
     Active Substance: LEUPROLIDE ACETATE
     Indication: PROSTATE CANCER METASTATIC
     Dosage: 45 MG,6 MONTH DOSE
     Route: 065
     Dates: start: 20060925, end: 20161016

REACTIONS (2)
  - Prostate cancer [Fatal]
  - Renal failure [Fatal]
